FAERS Safety Report 10642701 (Version 1)
Quarter: 2014Q4

REPORT INFORMATION
  Report Type: Spontaneous
  Country: US (occurrence: None)
  Receive Date: 20141121
  Receipt Date: 20141121
  Transmission Date: 20150529
  Serious: No
  Sender: FDA-Public Use
  Company Number: 163-10004-14085199

PATIENT
  Age: 36 Year
  Sex: Female

DRUGS (1)
  1. OTEZLA [Suspect]
     Active Substance: APREMILAST
     Indication: PSORIATIC ARTHROPATHY
     Dosage: TITRATION PACK, 2 IN 1 D, PO
     Route: 048
     Dates: start: 201406

REACTIONS (3)
  - Nausea [None]
  - Joint warmth [None]
  - Joint swelling [None]

NARRATIVE: CASE EVENT DATE: 201406
